FAERS Safety Report 8937532 (Version 3)
Quarter: 2013Q1

REPORT INFORMATION
  Report Type: Spontaneous
  Country: JP (occurrence: None)
  Receive Date: 20121030
  Receipt Date: 20130128
  Transmission Date: 20140127
  Serious: Yes (Hospitalization)
  Sender: FDA-Public Use
  Company Number: AXC-2012-000547

PATIENT
  Age: 58 Year
  Sex: Male

DRUGS (17)
  1. URSODEOXYCHOLIC ACID [Suspect]
     Indication: LIVER DISORDER
     Route: 048
  2. WARFARIN POTASSIUM [Suspect]
     Indication: ATRIAL FIBRILLATION
     Route: 048
     Dates: start: 20121030
  3. HALFDIGOXIN [Suspect]
     Indication: PRODUCT USED FOR UNKNOWN INDICATION
     Route: 048
  4. PL [Suspect]
     Indication: NASOPHARYNGITIS
     Route: 048
     Dates: start: 20121023, end: 20121028
  5. ALOSITOL [Suspect]
     Indication: HYPERURICAEMIA
     Route: 048
     Dates: start: 20120927, end: 20121030
  6. CYANAMIDE (CYANAMIDE) [Concomitant]
  7. CRAVIT (LEVOFLOXACIN) [Concomitant]
  8. PREMINENT (HYDROCHLOROTHIAZIDE, LOSARTAN POTASSIUM) [Concomitant]
  9. SELARA (EPLERENONE) [Concomitant]
  10. GASTER [Concomitant]
  11. CONIEL (BENIDIPINE HYDROCHLORIDE) [Concomitant]
  12. MAINTATE (BISOPROLOL FUMARATE) [Concomitant]
  13. LANIRAPID ( METILDIGOXIN) [Concomitant]
  14. SOLDEM 1 (GLUCOSE, SODIUM CHLORIDE, SODIUM LACTATE) [Concomitant]
  15. CEFEMETAZOLE (CEFEMTAZOLE) [Concomitant]
  16. ALLEGRA [Concomitant]
  17. TAKEPRON (LANSOPRAZOLE) [Concomitant]

REACTIONS (15)
  - Stevens-Johnson syndrome [None]
  - Drug reaction with eosinophilia and systemic symptoms [None]
  - Drug eruption [None]
  - Pigmentation disorder [None]
  - Enanthema [None]
  - Eczema [None]
  - Erythema [None]
  - Eyelid oedema [None]
  - Oedema [None]
  - Pruritus [None]
  - Pyrexia [None]
  - Decreased appetite [None]
  - Vomiting [None]
  - Hypotension [None]
  - Faeces discoloured [None]
